FAERS Safety Report 4980328-7 (Version None)
Quarter: 2006Q2

REPORT INFORMATION
  Report Type: 
  Country: None (occurrence: None)
  Receive Date: 20060418
  Receipt Date: 20060410
  Transmission Date: 20061013
  Serious: Yes (Other)
  Sender: FDA-Public Use
  Company Number: 2006049862

PATIENT
  Age: 48 Year
  Sex: Female
  Weight: 88.4514 kg

DRUGS (6)
  1. LIPITOR [Suspect]
     Indication: BLOOD CHOLESTEROL INCREASED
     Dosage: 10 MG (10 MG, 1 IN 1 D)
     Dates: start: 20041001, end: 20060101
  2. NEURONTIN [Suspect]
     Indication: ANXIETY
     Dosage: 1500 MG
     Dates: start: 20030801
  3. NEURONTIN [Suspect]
     Indication: NEURALGIA
     Dosage: 1500 MG
     Dates: start: 20030801
  4. IBUPROFEN [Suspect]
     Indication: PAIN
  5. BENICAR [Concomitant]
  6. KLONOPIN [Concomitant]

REACTIONS (10)
  - ABASIA [None]
  - DRUG INEFFECTIVE [None]
  - FALL [None]
  - GENERAL PHYSICAL HEALTH DETERIORATION [None]
  - JOINT RANGE OF MOTION DECREASED [None]
  - MENTAL DISORDER [None]
  - MYALGIA [None]
  - NEURALGIA [None]
  - PAIN IN EXTREMITY [None]
  - SYMPTOM MASKED [None]
